FAERS Safety Report 7099927-4 (Version None)
Quarter: 2010Q4

REPORT INFORMATION
  Report Type: 
  Country: None (occurrence: None)
  Receive Date: 20101112
  Receipt Date: 20101103
  Transmission Date: 20110411
  Serious: Yes (Other)
  Sender: FDA-Public Use
  Company Number: US-JNJFOC-20100708845

PATIENT
  Sex: Female

DRUGS (1)
  1. ELMIRON [Suspect]
     Indication: CYSTITIS INTERSTITIAL
     Route: 065

REACTIONS (2)
  - RECTAL HAEMORRHAGE [None]
  - SWELLING [None]
